FAERS Safety Report 9102259 (Version 2)
Quarter: 2013Q1

REPORT INFORMATION
  Report Type: Report from Study
  Country: JP (occurrence: JP)
  Receive Date: 20130125
  Receipt Date: 20130125
  Transmission Date: 20140127
  Serious: Yes (Hospitalization, Other)
  Sender: FDA-Public Use
  Company Number: JP-009507513-2012SP016823

PATIENT
  Age: 63 Year
  Sex: Male
  Weight: 65 kg

DRUGS (27)
  1. MK-4031 [Suspect]
     Indication: CHRONIC HEPATITIS C
     Dosage: 100 ?G, QW
     Route: 058
     Dates: start: 20111212, end: 20120122
  2. MK-4031 [Suspect]
     Dosage: 1.2 ?G/KG, QW
     Route: 058
     Dates: start: 20120123, end: 20120227
  3. REBETOL [Suspect]
     Indication: CHRONIC HEPATITIS C
     Dosage: 800 MG, QD
     Route: 048
     Dates: start: 20111212, end: 20120212
  4. REBETOL [Suspect]
     Dosage: 600 MG, QD
     Route: 048
     Dates: start: 20120213, end: 20120216
  5. REBETOL [Suspect]
     Dosage: 200 MG, QD
     Route: 048
     Dates: start: 20120217, end: 20120219
  6. REBETOL [Suspect]
     Dosage: 200 MG, QOD
     Route: 048
     Dates: start: 20120220, end: 20120226
  7. REBETOL [Suspect]
     Dosage: 400 MG, QOD
     Route: 048
     Dates: start: 20120221, end: 20120226
  8. REBETOL [Suspect]
     Dosage: 200 MG, QD
     Route: 048
     Dates: start: 20120227, end: 20120302
  9. TELAVIC [Suspect]
     Indication: HEPATITIS C
     Dosage: 2250 MG, QD
     Route: 048
     Dates: start: 20111212
  10. TELAVIC [Suspect]
     Dosage: 1500 MG, QD
     Route: 048
     Dates: start: 20120217, end: 20120302
  11. HERBS (UNSPECIFIED) [Concomitant]
     Indication: PROPHYLAXIS
     Dosage: FORMULATION: POR, UPDATE (15JUN2012): DOSE, STOP DATE AND DURATION, CUMULATIVE DOSE: 7.5 GM
     Route: 048
     Dates: start: 20111216, end: 20120313
  12. ALLEGRA [Concomitant]
     Indication: PROPHYLAXIS
     Dosage: FORMULATION: POR, UPDATE (15JUN2012): DOSE AND DURATION
     Route: 048
     Dates: start: 20111219, end: 20120302
  13. NORVASC [Concomitant]
     Indication: HYPERTENSION
     Dosage: UPDATE (15JUN2012): FORMULATION POR
     Route: 048
     Dates: start: 20120330
  14. DIOVAN [Concomitant]
     Indication: HYPERTENSION
     Dosage: UPDATE (15JUN2012): FORMULATION POR
     Route: 048
     Dates: start: 20120330
  15. AMMONIUM GLYCYRRHIZATE (+) CYSTEINE (+) GLYCINE [Concomitant]
     Indication: CHRONIC HEPATITIS C
     Dosage: UPDATE (15JUN2012)
     Route: 042
     Dates: start: 200005
  16. LOXOPROFEN [Concomitant]
     Indication: NAUSEA
     Dosage: UPDATE (15JUN2012)
     Route: 048
     Dates: start: 20111216, end: 20120112
  17. PARIET [Concomitant]
     Indication: NAUSEA
     Dosage: UPDATE (15JUN2012)
     Route: 048
     Dates: start: 20111216, end: 20111222
  18. DERMOVATE [Concomitant]
     Indication: RASH
     Dosage: UPDATE (15JUN2012)
     Route: 061
     Dates: start: 20111219, end: 20120122
  19. GASMOTIN [Concomitant]
     Indication: PRODUCT USED FOR UNKNOWN INDICATION
     Dosage: UPDATE (15JUN2012)
     Route: 048
     Dates: start: 20111226, end: 20120108
  20. AMINO ACIDS (UNSPECIFIED) [Concomitant]
     Indication: PRODUCT USED FOR UNKNOWN INDICATION
     Dosage: UPDATE (15JUN2012)
     Route: 042
  21. ALLOPURINOL [Concomitant]
     Indication: HYPERURICAEMIA
     Dosage: UPDATE (15JUN2012)
     Route: 048
     Dates: start: 20120303, end: 20120308
  22. ARNICA (+) ECHINACEA ANGUSTIFOLIA (+) EUROPEAN GOLDENROD (+) HORSETAIL [Concomitant]
     Indication: HYPERURICAEMIA
     Dosage: UPDATE (15JUN2012)
     Route: 048
     Dates: start: 20120303, end: 20120308
  23. ALDACTONE TABLETS [Concomitant]
     Indication: PRODUCT USED FOR UNKNOWN INDICATION
     Dosage: UPDATE (15JUN2012)
     Route: 048
     Dates: start: 20120330, end: 20120405
  24. ALDACTONE TABLETS [Concomitant]
     Indication: PRODUCT USED FOR UNKNOWN INDICATION
     Dosage: UPDATE (15JUN2012)
     Route: 048
     Dates: start: 20120406, end: 20120520
  25. LASIX (FUROSEMIDE) [Concomitant]
     Indication: PRODUCT USED FOR UNKNOWN INDICATION
     Dosage: UPDATE (15JUN2012)
     Route: 048
     Dates: start: 20120406
  26. LASIX (FUROSEMIDE) [Concomitant]
     Indication: PRODUCT USED FOR UNKNOWN INDICATION
     Dosage: UPDATE (15JUN2012)
     Route: 048
     Dates: start: 20120330, end: 20120405
  27. PARIET [Concomitant]
     Indication: PRODUCT USED FOR UNKNOWN INDICATION
     Dosage: UPDATE (15JUN2012)
     Route: 048
     Dates: start: 20120330

REACTIONS (3)
  - Haemoglobin decreased [Not Recovered/Not Resolved]
  - Retinopathy [Recovering/Resolving]
  - Ascites [Recovered/Resolved]
